APPROVED DRUG PRODUCT: SODIUM BICARBONATE
Active Ingredient: SODIUM BICARBONATE
Strength: 5MEQ/10ML (0.5MEQ/ML)
Dosage Form/Route: SOLUTION;INTRAVENOUS
Application: A202679 | Product #001 | TE Code: AP
Applicant: HOSPIRA INC
Approved: Mar 7, 2017 | RLD: No | RS: No | Type: RX